FAERS Safety Report 4335383-4 (Version None)
Quarter: 2004Q2

REPORT INFORMATION
  Report Type: 
  Country: None (occurrence: None)
  Receive Date: 20040408
  Receipt Date: 20040408
  Transmission Date: 20050107
  Serious: Yes (Life-Threatening)
  Sender: FDA-Public Use
  Company Number: None

PATIENT
  Age: 76 Year
  Sex: Male

DRUGS (10)
  1. HEPARIN [Suspect]
     Indication: THROMBOSIS PROPHYLAXIS
     Dosage: 5000 U SC
     Route: 058
     Dates: start: 20040111, end: 20040113
  2. CEFEPINE [Concomitant]
  3. DEXAMETHASONE [Concomitant]
  4. FUROSEMIDE [Concomitant]
  5. HALOPERIDOL [Concomitant]
  6. LORAZEPAM [Concomitant]
  7. INSULIN [Concomitant]
  8. METHYLPREDNISODONE [Concomitant]
  9. METOPROLOL [Concomitant]
  10. RANITIDINE [Concomitant]

REACTIONS (3)
  - HAEMATURIA [None]
  - HAEMORRHAGE [None]
  - PLATELET COUNT DECREASED [None]
